FAERS Safety Report 9360794 (Version 1)
Quarter: 2013Q2

REPORT INFORMATION
  Report Type: Spontaneous
  Country: FR (occurrence: FR)
  Receive Date: 20130621
  Receipt Date: 20130621
  Transmission Date: 20140414
  Serious: Yes (Other)
  Sender: FDA-Public Use
  Company Number: FR-ELI_LILLY_AND_COMPANY-FR201306006417

PATIENT
  Sex: Male

DRUGS (2)
  1. CIALIS [Suspect]
     Dosage: 20 MG, QD
     Route: 048
  2. CIALIS [Suspect]
     Dosage: 2.5 MG, QD
     Route: 048

REACTIONS (2)
  - Age-related macular degeneration [Not Recovered/Not Resolved]
  - Back pain [Not Recovered/Not Resolved]
